FAERS Safety Report 5602722-3 (Version None)
Quarter: 2008Q1

REPORT INFORMATION
  Report Type: 
  Country: None (occurrence: None)
  Receive Date: 20080125
  Receipt Date: 20080114
  Transmission Date: 20080703
  Serious: Yes (Hospitalization, Other)
  Sender: FDA-Public Use
  Company Number: GB-WYE-H01606807

PATIENT
  Sex: Male

DRUGS (6)
  1. CORDARONE [Suspect]
     Indication: ATRIAL FIBRILLATION
     Route: 048
     Dates: start: 20071003
  2. ASPIRIN [Concomitant]
     Dosage: 75 MG
     Route: 065
  3. ISOSORBIDE MONONITRATE [Concomitant]
     Dosage: ^30^
     Route: 065
  4. ATORVASTATIN [Concomitant]
     Dosage: 80 MG
     Route: 065
  5. SOTALOL HYDROCHLORIDE [Concomitant]
     Indication: ARRHYTHMIA
     Dosage: UNKNOWN
     Route: 065
     Dates: end: 20071129
  6. BISOPROLOL FUMARATE [Concomitant]
     Indication: ARRHYTHMIA
     Dosage: 1.25
     Route: 065
     Dates: start: 20071129

REACTIONS (6)
  - BRADYCARDIA [None]
  - HALLUCINATION [None]
  - NIGHTMARE [None]
  - PALPITATIONS [None]
  - SLEEP DISORDER [None]
  - THINKING ABNORMAL [None]
